FAERS Safety Report 10023421 (Version 1)
Quarter: 2013Q4

REPORT INFORMATION
  Report Type: Spontaneous
  Country: US (occurrence: None)
  Receive Date: 20131223
  Receipt Date: 20131223
  Transmission Date: 20140711
  Serious: Yes (Death, Other)
  Sender: FDA-Public Use
  Company Number: EUS-2012-00938

PATIENT
  Age: 25 Year
  Sex: Male

DRUGS (2)
  1. ASPARAGINASE (UNSPECIFIED) (ASPARAGINASE) [Suspect]
     Indication: LYMPHOCYTIC LEUKAEMIA
     Dosage: 600 IU (600 IU, 1 IN 1 DAYS), UNKNOWN
     Dates: start: 19880227, end: 19880303
  2. GABEXATE MESILATE (GABEXATE MESILATE) [Suspect]
     Indication: PROPHYLAXIS
     Dosage: 1-H DRIP INFUSION (200 MG, 2 IN 1 DAYS), INTRAVENOUS (NOT OTHERWISE SPECFIED)?
     Route: 042

REACTIONS (5)
  - Pancreatitis acute [None]
  - Disseminated intravascular coagulation [None]
  - Ascites [None]
  - Lymphocytic leukaemia [None]
  - Malignant neoplasm progression [None]
